FAERS Safety Report 9072214 (Version 1)
Quarter: 2013Q1

REPORT INFORMATION
  Report Type: Report from Study
  Country: US (occurrence: US)
  Receive Date: 20130129
  Receipt Date: 20130129
  Transmission Date: 20140127
  Serious: No
  Sender: FDA-Public Use
  Company Number: US-ABBOTT-12P-163-0939021-00

PATIENT
  Sex: Female
  Weight: 141.65 kg

DRUGS (4)
  1. HUMIRA 40 MG/0.8 ML PEN [Suspect]
     Indication: CROHN^S DISEASE
     Dates: start: 2010, end: 20120517
  2. HUMIRA 40 MG/0.8 ML PEN [Suspect]
     Dates: start: 20120521, end: 20120521
  3. COLEZAL [Concomitant]
     Indication: CROHN^S DISEASE
  4. CLARITIN-D [Concomitant]
     Indication: HYPERSENSITIVITY

REACTIONS (3)
  - Diarrhoea haemorrhagic [Not Recovered/Not Resolved]
  - Hypertension [Unknown]
  - Crohn^s disease [Not Recovered/Not Resolved]
